FAERS Safety Report 9735380 (Version 2)
Quarter: 2013Q4

REPORT INFORMATION
  Report Type: Spontaneous
  Country: GB (occurrence: GB)
  Receive Date: 20131206
  Receipt Date: 20131226
  Transmission Date: 20140711
  Serious: Yes (Hospitalization, Other)
  Sender: FDA-Public Use
  Company Number: GB-PFIZER INC-2013347570

PATIENT
  Age: 66 Year
  Sex: Female

DRUGS (5)
  1. METHOTREXATE SODIUM [Suspect]
     Dosage: 20 MG, WEEKLY
     Route: 058
     Dates: end: 20130917
  2. SULFASALAZINE [Suspect]
     Dosage: 1000MG, TWICE DAILY
     Route: 048
     Dates: end: 20130917
  3. TRIMETHOPRIM [Interacting]
     Indication: URINARY TRACT INFECTION
     Dosage: UNK
     Route: 048
  4. LANSOPRAZOLE [Concomitant]
     Dosage: 30MG, 1X/DAY
     Route: 048
  5. PREDNISOLONE [Concomitant]
     Dosage: 5MG , 1X/DAY
     Route: 048

REACTIONS (2)
  - Drug interaction [Recovered/Resolved]
  - Pancytopenia [Recovered/Resolved]
